FAERS Safety Report 20200527 (Version 2)
Quarter: 2022Q1

REPORT INFORMATION
  Report Type: Spontaneous
  Country: US (occurrence: None)
  Receive Date: 20211217
  Receipt Date: 20220122
  Transmission Date: 20220423
  Serious: No
  Sender: FDA-Public Use
  Company Number: 2021A811436

PATIENT
  Age: 20427 Day
  Sex: Female
  Weight: 81.6 kg

DRUGS (1)
  1. BYDUREON BCISE [Suspect]
     Active Substance: EXENATIDE
     Indication: Type 2 diabetes mellitus
     Route: 058
     Dates: start: 20211109

REACTIONS (8)
  - Eye pruritus [Recovering/Resolving]
  - Injection site bruising [Unknown]
  - Amnesia [Unknown]
  - Pruritus [Recovering/Resolving]
  - Device issue [Unknown]
  - Device leakage [Unknown]
  - Device use issue [Unknown]
  - Device delivery system issue [Unknown]

NARRATIVE: CASE EVENT DATE: 20211109
